FAERS Safety Report 12450253 (Version 4)
Quarter: 2016Q3

REPORT INFORMATION
  Report Type: Spontaneous
  Country: US (occurrence: US)
  Receive Date: 20160609
  Receipt Date: 20160727
  Transmission Date: 20161109
  Serious: Yes (Other)
  Sender: FDA-Public Use
  Company Number: US-ACCORD-041125

PATIENT
  Age: 74 Year
  Sex: Female

DRUGS (16)
  1. RETINOL [Concomitant]
     Active Substance: RETINOL
  2. MAGNESIUM HYDROXIDE. [Concomitant]
     Active Substance: MAGNESIUM HYDROXIDE
  3. ARMOUR THYROID [Concomitant]
     Active Substance: THYROID, PORCINE
  4. PREDNISONE. [Concomitant]
     Active Substance: PREDNISONE
  5. ESCITALOPRAM [Suspect]
     Active Substance: ESCITALOPRAM OXALATE
     Indication: STRESS
     Route: 048
     Dates: start: 20160424, end: 20160601
  6. PREVACID SOLO [Concomitant]
     Route: 060
  7. MILK THISTLE SEED EXTRACT [Concomitant]
     Indication: HEPATIC STEATOSIS
  8. COMBIVENT [Concomitant]
     Active Substance: ALBUTEROL SULFATE\IPRATROPIUM BROMIDE
     Dosage: COMBIVENT INHALER 2 PUFFS
  9. KLOR-CON [Concomitant]
     Active Substance: POTASSIUM CHLORIDE
  10. ACETYLSALICYLIC ACID [Concomitant]
     Active Substance: ASPIRIN
  11. COLECALCIFEROL [Concomitant]
     Active Substance: CHOLECALCIFEROL
  12. HYDROCHLOROTHIAZIDE. [Concomitant]
     Active Substance: HYDROCHLOROTHIAZIDE
  13. LIDODERM [Concomitant]
     Active Substance: LIDOCAINE
     Indication: PAIN
  14. PYRIDOXINE [Concomitant]
     Active Substance: PYRIDOXINE
  15. LASIX [Concomitant]
     Active Substance: FUROSEMIDE
  16. BIOTIN [Concomitant]
     Active Substance: BIOTIN

REACTIONS (24)
  - Sinusitis [Unknown]
  - Headache [Recovered/Resolved]
  - Grandiosity [Not Recovered/Not Resolved]
  - Myalgia [Not Recovered/Not Resolved]
  - Weight decreased [Not Recovered/Not Resolved]
  - Hypertension [Not Recovered/Not Resolved]
  - Carpal tunnel syndrome [Unknown]
  - Paraesthesia [Unknown]
  - Toothache [Recovered/Resolved]
  - Influenza like illness [Not Recovered/Not Resolved]
  - Alopecia [Not Recovered/Not Resolved]
  - Peripheral swelling [Not Recovered/Not Resolved]
  - Skin odour abnormal [Unknown]
  - Vascular pain [Not Recovered/Not Resolved]
  - Insomnia [Not Recovered/Not Resolved]
  - Constipation [Not Recovered/Not Resolved]
  - Neck pain [Not Recovered/Not Resolved]
  - Yawning [Recovered/Resolved]
  - Nausea [Not Recovered/Not Resolved]
  - Tachyphrenia [Not Recovered/Not Resolved]
  - Hyperhidrosis [Not Recovered/Not Resolved]
  - Arthritis [Not Recovered/Not Resolved]
  - Arthralgia [Not Recovered/Not Resolved]
  - Dyspnoea [Unknown]

NARRATIVE: CASE EVENT DATE: 20160429
